FAERS Safety Report 10221847 (Version 1)
Quarter: 2014Q2

REPORT INFORMATION
  Report Type: Spontaneous
  Country: US (occurrence: None)
  Receive Date: 20140605
  Receipt Date: 20140605
  Transmission Date: 20141212
  Serious: Yes (Hospitalization)
  Sender: FDA-Public Use
  Company Number: None

PATIENT
  Age: 65 Year
  Sex: Male
  Weight: 70.2 kg

DRUGS (1)
  1. INSULIN [Suspect]
     Indication: DIABETES MELLITUS
     Dosage: 34 UNITS ONCE SQ
     Route: 058
     Dates: start: 20140603, end: 20140603

REACTIONS (5)
  - Accidental overdose [None]
  - Hyperhidrosis [None]
  - Sedation [None]
  - Hypoglycaemia [None]
  - Myocardial infarction [None]
